FAERS Safety Report 15496005 (Version 1)
Quarter: 2018Q4

REPORT INFORMATION
  Report Type: Spontaneous
  Country: GR (occurrence: GR)
  Receive Date: 20181012
  Receipt Date: 20181012
  Transmission Date: 20190205
  Serious: Yes (Other)
  Sender: FDA-Public Use
  Company Number: PHHY2018GR123536

PATIENT
  Age: 16 Year
  Sex: Male

DRUGS (1)
  1. DEXAMETHASONE. [Suspect]
     Active Substance: DEXAMETHASONE
     Indication: HAEMANGIOMA
     Dosage: UNK
     Route: 065

REACTIONS (2)
  - Bacterial infection [Recovered/Resolved]
  - Immunosuppression [Unknown]
